FAERS Safety Report 6152931-2 (Version None)
Quarter: 2009Q2

REPORT INFORMATION
  Report Type: 
  Country: None (occurrence: None)
  Receive Date: 20090413
  Receipt Date: 20090405
  Transmission Date: 20091009
  Serious: Yes (Other)
  Sender: FDA-Public Use
  Company Number: PHHY2009MX13305

PATIENT
  Sex: Female

DRUGS (4)
  1. DIOVAN [Suspect]
     Indication: HYPERTENSION
     Dosage: 80 MG/DAY
     Dates: start: 20071012
  2. JANUMET [Concomitant]
     Dosage: 1 TABLET PER DAY
  3. CRESTOR [Concomitant]
     Dosage: 1 TABLET PER DAY
  4. BI-EUGLUCON M [Concomitant]
     Dosage: 2 TABLETS PER DAY

REACTIONS (10)
  - ANOREXIA [None]
  - BLOOD GLUCOSE FLUCTUATION [None]
  - BLOOD PRESSURE FLUCTUATION [None]
  - DYSURIA [None]
  - FATIGUE [None]
  - HAEMOGLOBIN DECREASED [None]
  - HIP FRACTURE [None]
  - PROSTHESIS IMPLANTATION [None]
  - RENAL FAILURE CHRONIC [None]
  - SENILE DEMENTIA [None]
